FAERS Safety Report 9142677 (Version 2)
Quarter: 2013Q2

REPORT INFORMATION
  Report Type: Report from Study
  Country: US (occurrence: US)
  Receive Date: 20130306
  Receipt Date: 20130515
  Transmission Date: 20140414
  Serious: Yes (Death)
  Sender: FDA-Public Use
  Company Number: PHEH2013US005316

PATIENT
  Age: 95 Year
  Sex: Male

DRUGS (1)
  1. TOBI [Suspect]
     Indication: BRONCHIECTASIS
     Dosage: 300 MG, BID 28 DAYS ON , 28 DAYS OFF
     Dates: start: 20100819, end: 20130107

REACTIONS (1)
  - Respiratory failure [Fatal]
